FAERS Safety Report 9563757 (Version 1)
Quarter: 2013Q3

REPORT INFORMATION
  Report Type: Spontaneous
  Country: US (occurrence: None)
  Receive Date: 20130926
  Receipt Date: 20130926
  Transmission Date: 20140515
  Serious: Yes (Other)
  Sender: FDA-Public Use
  Company Number: 2013SA092709

PATIENT
  Age: 26 Year
  Sex: Male

DRUGS (1)
  1. GOLD BOND POWDER SPRAY FRESH [Suspect]
     Indication: HYPERHIDROSIS
     Dates: start: 20130905

REACTIONS (3)
  - Chemical injury [None]
  - Genital burning sensation [None]
  - Impaired work ability [None]
